FAERS Safety Report 21390011 (Version 1)
Quarter: 2022Q3

REPORT INFORMATION
  Report Type: Spontaneous
  Country: US (occurrence: None)
  Receive Date: 20220927
  Receipt Date: 20220927
  Transmission Date: 20221026
  Serious: Yes (Hospitalization)
  Sender: FDA-Public Use
  Company Number: None

PATIENT
  Age: 73 Year
  Sex: Male
  Weight: 96.71 kg

DRUGS (21)
  1. CAPECITABINE [Suspect]
     Active Substance: CAPECITABINE
     Indication: Rectal cancer
     Dosage: FREQUENCY : TWICE A DAY;?
     Route: 048
     Dates: start: 202208
  2. ADVAIR [Concomitant]
  3. ADVIL [Concomitant]
     Active Substance: IBUPROFEN
  4. DILAUDID [Concomitant]
     Active Substance: HYDROMORPHONE HYDROCHLORIDE
  5. FAMOTIDINE [Concomitant]
     Active Substance: FAMOTIDINE
  6. FENTANYL [Concomitant]
     Active Substance: FENTANYL
  7. FLONASE [Concomitant]
     Active Substance: FLUTICASONE PROPIONATE
  8. FUROSEMIDE [Concomitant]
     Active Substance: FUROSEMIDE
  9. GABAPENTIN [Concomitant]
     Active Substance: GABAPENTIN
  10. KLOR-CON [Concomitant]
     Active Substance: POTASSIUM CHLORIDE
  11. LEVEMIR [Concomitant]
     Active Substance: INSULIN DETEMIR
  12. METOPROLOL [Concomitant]
     Active Substance: METOPROLOL
  13. MONTELUKAST [Concomitant]
     Active Substance: MONTELUKAST SODIUM
  14. MUCINEX [Concomitant]
     Active Substance: GUAIFENESIN
  15. MYSOLINE [Concomitant]
     Active Substance: PRIMIDONE
  16. NOVOLOG [Concomitant]
     Active Substance: INSULIN ASPART
  17. OZEMPIC [Concomitant]
     Active Substance: SEMAGLUTIDE
  18. PREDNISONE [Concomitant]
     Active Substance: PREDNISONE
  19. VALSARTAN [Concomitant]
     Active Substance: VALSARTAN
  20. VASCEPA [Concomitant]
     Active Substance: ICOSAPENT ETHYL
  21. ZINC OXIDE [Concomitant]
     Active Substance: ZINC OXIDE

REACTIONS (2)
  - Hospitalisation [None]
  - Therapy interrupted [None]
